FAERS Safety Report 7969118-0 (Version None)
Quarter: 2011Q4

REPORT INFORMATION
  Report Type: 
  Country: None (occurrence: None)
  Receive Date: 20111209
  Receipt Date: 20111208
  Transmission Date: 20120403
  Serious: Yes (Hospitalization)
  Sender: FDA-Public Use
  Company Number: JP-ABBOTT-11P-087-0871849-00

PATIENT
  Sex: Male
  Weight: 60 kg

DRUGS (4)
  1. HUMIRA [Suspect]
     Dates: start: 20110108
  2. HUMIRA [Suspect]
     Dates: start: 20101225, end: 20101225
  3. PREDNISOLONE [Concomitant]
     Indication: CROHN'S DISEASE
     Route: 048
     Dates: end: 20110502
  4. HUMIRA [Suspect]
     Indication: CROHN'S DISEASE
     Route: 058
     Dates: start: 20101209, end: 20101209

REACTIONS (2)
  - ANASTOMOTIC LEAK [None]
  - ENTEROCUTANEOUS FISTULA [None]
